FAERS Safety Report 6113694-X (Version None)
Quarter: 2009Q1

REPORT INFORMATION
  Report Type: 
  Country: None (occurrence: None)
  Receive Date: 20090312
  Receipt Date: 20090304
  Transmission Date: 20090719
  Serious: Yes (Other)
  Sender: FDA-Public Use
  Company Number: US-BAXTER-2009BH003668

PATIENT

DRUGS (2)
  1. DURAMORPH PF [Suspect]
     Indication: ANAESTHESIA
     Route: 037
  2. ADCON L [Suspect]
     Indication: TISSUE ADHESION PROPHYLAXIS
     Route: 061

REACTIONS (2)
  - DURAL TEAR [None]
  - HEADACHE [None]
